FAERS Safety Report 19493537 (Version 1)
Quarter: 2021Q3

REPORT INFORMATION
  Report Type: Spontaneous
  Country: DE (occurrence: DE)
  Receive Date: 20210705
  Receipt Date: 20210705
  Transmission Date: 20211014
  Serious: Yes (Hospitalization)
  Sender: FDA-Public Use
  Company Number: DE-TEVA-2021-DE-1928308

PATIENT
  Age: 80 Year
  Sex: Female

DRUGS (10)
  1. ATORVASTATIN [Concomitant]
     Active Substance: ATORVASTATIN
     Dosage: 20 MILLIGRAM DAILY; 0?0?1?0
     Route: 048
  2. CARVEDILOL. [Concomitant]
     Active Substance: CARVEDILOL
     Dosage: 50 MILLIGRAM DAILY; 1?0?1?0
     Route: 048
  3. ACETYLSALICYLSAURE [Concomitant]
     Active Substance: ASPIRIN
     Dosage: 100 MILLIGRAM DAILY; 1?0?0?0
     Route: 048
  4. GABAPENTIN. [Suspect]
     Active Substance: GABAPENTIN
     Dosage: 900 MILLIGRAM DAILY; 1?1?1?0
     Route: 048
  5. DULAGLUTID [Concomitant]
     Active Substance: DULAGLUTIDE
     Dosage: ONCE A WEEK, SOLUTION FOR INJECTION / INFUSION
     Route: 030
  6. AMITRIPTYLIN [Suspect]
     Active Substance: AMITRIPTYLINE
     Dosage: 10 MILLIGRAM DAILY; 0?0?1?0
     Route: 048
  7. MAGNESIUMCITRAT [Concomitant]
     Dosage: 300 MILLIGRAM DAILY;  0?0?1?0
     Route: 048
  8. COLECALCIFEROL (VITAMIN D) [Concomitant]
     Active Substance: CHOLECALCIFEROL
     Dosage: 20000 IU (INTERNATIONAL UNIT) DAILY; 1?0?0?0
     Route: 048
  9. BRIVUDIN [Suspect]
     Active Substance: BRIVUDINE
     Dosage: 125 MILLIGRAM DAILY; 1?0?0?0
     Route: 048
  10. AMLODIPIN/HYDROCHLOROTHIAZID/OLMESARTAN [Concomitant]
     Dosage: 1 DOSAGE FORMS DAILY; 5 | 12.5 | 40 MG, 1?0?0?0
     Route: 048

REACTIONS (2)
  - Syncope [Recovered/Resolved]
  - Nausea [Recovering/Resolving]
